FAERS Safety Report 20607363 (Version 1)
Quarter: 2022Q1

REPORT INFORMATION
  Report Type: Spontaneous
  Country: US (occurrence: None)
  Receive Date: 20220316
  Receipt Date: 20220316
  Transmission Date: 20220424
  Serious: No
  Sender: FDA-Public Use
  Company Number: None

PATIENT
  Age: 78 Year
  Sex: Female
  Weight: 58.97 kg

DRUGS (18)
  1. IBRANCE [Suspect]
     Active Substance: PALBOCICLIB
     Indication: Breast cancer
     Dosage: OTHER FREQUENCY : 3 W, 1W OFF;?
     Route: 048
  2. CALCIUM [Concomitant]
     Active Substance: CALCIUM
  3. CIPROFLOXACIN [Concomitant]
     Active Substance: CIPROFLOXACIN
  4. CLINDAMYCIN [Concomitant]
     Active Substance: CLINDAMYCIN
  5. VITAMIN D3 [Concomitant]
     Active Substance: CHOLECALCIFEROL
  6. DIAZEPAM [Concomitant]
     Active Substance: DIAZEPAM
  7. DULCOLAX NOS [Concomitant]
     Active Substance: BISACODYL OR DOCUSATE SODIUM
  8. Ecotoin [Concomitant]
  9. FASLODEX [Concomitant]
     Active Substance: FULVESTRANT
  10. LETROZOLE [Concomitant]
     Active Substance: LETROZOLE
  11. LISINOPRIL [Concomitant]
     Active Substance: LISINOPRIL
  12. METOPROLOL [Concomitant]
     Active Substance: METOPROLOL
  13. VITAMINS [Concomitant]
     Active Substance: VITAMINS
  14. NYSTATIN [Concomitant]
     Active Substance: NYSTATIN
  15. PERCOCET [Concomitant]
     Active Substance: ACETAMINOPHEN\OXYCODONE HYDROCHLORIDE
  16. Pravistatin Sodium [Concomitant]
  17. PROLIA [Concomitant]
     Active Substance: DENOSUMAB
  18. VALACYCLOVIR [Concomitant]
     Active Substance: VALACYCLOVIR HYDROCHLORIDE

REACTIONS (3)
  - Osteomyelitis [None]
  - White blood cell count decreased [None]
  - Therapy cessation [None]
